FAERS Safety Report 11507345 (Version 3)
Quarter: 2016Q3

REPORT INFORMATION
  Report Type: Spontaneous
  Country: FR (occurrence: FR)
  Receive Date: 20150915
  Receipt Date: 20160915
  Transmission Date: 20161109
  Serious: Yes (Hospitalization, Other)
  Sender: FDA-Public Use
  Company Number: FR-ASTELLAS-2015US032701

PATIENT
  Age: 45 Year
  Sex: Female

DRUGS (9)
  1. PROGRAF [Suspect]
     Active Substance: TACROLIMUS\TACROLIMUS ANHYDROUS
     Indication: PROPHYLAXIS AGAINST TRANSPLANT REJECTION
     Dosage: 0.5 MG TWICE DAILY AND 1 MG TWICE DAILY
     Route: 048
  2. GINGER                             /01646601/ [Interacting]
     Active Substance: GINGER
     Indication: DYSMENORRHOEA
     Dosage: UNK, UNKNOWN FREQ.
     Route: 065
  3. TARDYFERON [Concomitant]
     Active Substance: FERROUS SULFATE
     Indication: MINERAL SUPPLEMENTATION
     Dosage: UNK UNK, ONCE DAILY
     Route: 048
  4. UVEDOSE [Concomitant]
     Active Substance: CHOLECALCIFEROL
     Indication: VITAMIN D DEFICIENCY
     Dosage: UNK UNK, TWICE MONTHLY
     Route: 048
  5. EUPRESSYL                          /00631801/ [Concomitant]
     Active Substance: URAPIDIL
     Indication: HYPERTENSION
     Dosage: UNK UNK, TWICE DAILY
     Route: 048
  6. AMLODIPIN                          /00972401/ [Concomitant]
     Active Substance: AMLODIPINE BESYLATE
     Indication: PRODUCT USED FOR UNKNOWN INDICATION
     Dosage: UNK UNK, UNKNOWN FREQ.
     Route: 065
  7. SPASFON                            /00765801/ [Concomitant]
     Active Substance: PHLOROGLUCINOL\1,3,5-TRIMETHOXYBENZENE
     Indication: DYSMENORRHOEA
     Dosage: UNK UNK, UNKNOWN FREQ.
     Route: 030
  8. PROGRAF [Interacting]
     Active Substance: TACROLIMUS\TACROLIMUS ANHYDROUS
     Indication: PROPHYLAXIS AGAINST TRANSPLANT REJECTION
  9. DIFFU K [Concomitant]
     Active Substance: POTASSIUM CHLORIDE
     Indication: PRODUCT USED FOR UNKNOWN INDICATION
     Dosage: UNK UNK, UNKNOWN FREQ.
     Route: 065

REACTIONS (10)
  - C-reactive protein increased [Unknown]
  - Immunosuppressant drug level increased [Recovered/Resolved]
  - Endometriosis [Unknown]
  - Dysmenorrhoea [Unknown]
  - Blood potassium decreased [Unknown]
  - Drug interaction [Unknown]
  - Hypertension [Unknown]
  - Fibroma [Unknown]
  - Blood iron decreased [Unknown]
  - Malaise [Recovered/Resolved]

NARRATIVE: CASE EVENT DATE: 20150907
